FAERS Safety Report 23896625 (Version 1)
Quarter: 2024Q2

REPORT INFORMATION
  Report Type: Spontaneous
  Country: ZA (occurrence: None)
  Receive Date: 20240524
  Receipt Date: 20240524
  Transmission Date: 20240716
  Serious: Yes (Death)
  Sender: FDA-Public Use
  Company Number: 2024A120309

PATIENT
  Age: 80 Year
  Sex: Male

DRUGS (9)
  1. BUDESONIDE\FORMOTEROL FUMARATE DIHYDRATE [Suspect]
     Active Substance: BUDESONIDE\FORMOTEROL FUMARATE DIHYDRATE
     Dosage: UNKNOWN UNKNOWN
     Route: 055
  2. DAPAGLIFLOZIN PROPANEDIOL [Suspect]
     Active Substance: DAPAGLIFLOZIN PROPANEDIOL
     Route: 048
  3. VALSARTAN [Concomitant]
     Active Substance: VALSARTAN
  4. PREDNISONE [Concomitant]
     Active Substance: PREDNISONE
  5. BUDEP XR [Concomitant]
  6. SILDENAFIL CITRATE [Concomitant]
     Active Substance: SILDENAFIL CITRATE
  7. THEOPHYLLINE [Concomitant]
     Active Substance: THEOPHYLLINE
  8. QUETIAPINE [Concomitant]
     Active Substance: QUETIAPINE
  9. RIVAROXABAN [Concomitant]
     Active Substance: RIVAROXABAN

REACTIONS (3)
  - Lung disorder [Fatal]
  - Renal disorder [Fatal]
  - Emphysema [Fatal]
